FAERS Safety Report 13743565 (Version 3)
Quarter: 2017Q4

REPORT INFORMATION
  Report Type: Spontaneous
  Country: IT (occurrence: IT)
  Receive Date: 20170711
  Receipt Date: 20171128
  Transmission Date: 20180320
  Serious: Yes (Hospitalization)
  Sender: FDA-Public Use
  Company Number: IT-TEVA-785028ACC

PATIENT
  Age: 32 Year
  Sex: Female

DRUGS (7)
  1. GABAPENTIN. [Suspect]
     Active Substance: GABAPENTIN
     Indication: CONVULSION PROPHYLAXIS
     Dosage: 1200MG
  2. SODIUM VALPROATE + VALPROIC ACID [Suspect]
     Active Substance: VALPROATE SODIUM
     Indication: CONVULSION PROPHYLAXIS
     Dosage: 1000MG
  3. CLONAZEPAM. [Suspect]
     Active Substance: CLONAZEPAM
     Indication: PRODUCT USED FOR UNKNOWN INDICATION
     Route: 048
  4. FLUMAZENIL. [Suspect]
     Active Substance: FLUMAZENIL
     Indication: DRUG DEPENDENCE
  5. CLOBAZAM [Suspect]
     Active Substance: CLOBAZAM
     Indication: PRODUCT USED FOR UNKNOWN INDICATION
  6. DIAZEPAM. [Suspect]
     Active Substance: DIAZEPAM
     Indication: INTENTIONAL PRODUCT MISUSE
     Dosage: 2000MG
  7. FLUMAZENIL. [Suspect]
     Active Substance: FLUMAZENIL
     Indication: DRUG DETOXIFICATION
     Dosage: 40.5 MICROG/HOUR FOR 24 HOURS/DAY FOR 7 DAYS

REACTIONS (6)
  - Psychogenic seizure [Unknown]
  - Intentional product misuse [Recovered/Resolved]
  - Off label use [Unknown]
  - Drug dependence [Recovered/Resolved]
  - Intentional overdose [Recovered/Resolved]
  - Product use issue [Unknown]
